FAERS Safety Report 23338337 (Version 1)
Quarter: 2023Q4

REPORT INFORMATION
  Report Type: Spontaneous
  Country: US (occurrence: None)
  Receive Date: 20231224
  Receipt Date: 20231224
  Transmission Date: 20240110
  Serious: Yes (Hospitalization, Disabling)
  Sender: FDA-Public Use
  Company Number: None

PATIENT
  Age: 67 Year
  Sex: Female
  Weight: 68.4 kg

DRUGS (10)
  1. OZEMPIC [Suspect]
     Active Substance: SEMAGLUTIDE
     Route: 058
     Dates: start: 20220706, end: 20231023
  2. ALBUTEROL [Concomitant]
     Active Substance: ALBUTEROL
  3. SIMVASTATIN [Concomitant]
     Active Substance: SIMVASTATIN
  4. IRBESARTAN [Concomitant]
     Active Substance: IRBESARTAN
  5. TRINTELLIX [Concomitant]
     Active Substance: VORTIOXETINE HYDROBROMIDE
  6. BUPROPION [Concomitant]
     Active Substance: BUPROPION
  7. ADDERALL [Concomitant]
     Active Substance: AMPHETAMINE ASPARTATE\AMPHETAMINE SULFATE\DEXTROAMPHETAMINE SACCHARATE\DEXTROAMPHETAMINE SULFATE
  8. METFORMIN [Concomitant]
     Active Substance: METFORMIN HYDROCHLORIDE
  9. METOPROLOL [Concomitant]
     Active Substance: METOPROLOL
  10. VITAMINS [Concomitant]
     Active Substance: VITAMINS

REACTIONS (6)
  - Biliary colic [None]
  - Cholecystitis [None]
  - Obstructive pancreatitis [None]
  - Post procedural inflammation [None]
  - Surgical procedure repeated [None]
  - Nausea [None]

NARRATIVE: CASE EVENT DATE: 20231025
